FAERS Safety Report 9333732 (Version 3)
Quarter: 2013Q3

REPORT INFORMATION
  Report Type: Spontaneous
  Country: US (occurrence: None)
  Receive Date: 20130604
  Receipt Date: 20130916
  Transmission Date: 20140515
  Serious: Yes (Other)
  Sender: FDA-Public Use
  Company Number: JPI-P-032220

PATIENT
  Age: 34 Year
  Sex: Male
  Weight: 136.99 kg

DRUGS (4)
  1. XYREM (500 MILLIGRAM/MILLILITERS, SOLUTION) (SODIUM OXYBATE) [Suspect]
     Indication: NARCOLEPSY
     Dosage: 6 GM (3 GM, 2IN 1 D),OAL
     Route: 048
     Dates: start: 20101108, end: 2011
  2. AMPHETAMINE, DEXTROAMPHETAMINE MIXED SALTS [Concomitant]
  3. ARMODAFINIL [Concomitant]
  4. LISDEXAMFETAMINE [Concomitant]

REACTIONS (4)
  - Sleep apnoea syndrome [None]
  - Obesity [None]
  - Weight increased [None]
  - Somnolence [None]
